FAERS Safety Report 6394327-4 (Version None)
Quarter: 2009Q4

REPORT INFORMATION
  Report Type: 
  Country: None (occurrence: None)
  Receive Date: 20091006
  Receipt Date: 20090930
  Transmission Date: 20100525
  Serious: Yes (Death, Hospitalization, Other)
  Sender: FDA-Public Use
  Company Number: 2009SP023068

PATIENT
  Age: 68 Year
  Sex: Male
  Weight: 60 kg

DRUGS (4)
  1. INTRON A [Suspect]
     Indication: HEPATITIS C
     Dosage: 3 MIU; TIW; IM
     Route: 030
     Dates: start: 20080821, end: 20080828
  2. PROGRAF [Concomitant]
  3. PREDNISOLONE [Concomitant]
  4. DENOSINE /00784201/ [Concomitant]

REACTIONS (8)
  - ACUTE RESPIRATORY FAILURE [None]
  - ASPERGILLOSIS [None]
  - BLOOD BILIRUBIN INCREASED [None]
  - INTERSTITIAL LUNG DISEASE [None]
  - PLEURAL EFFUSION [None]
  - PNEUMOCYSTIS JIROVECI PNEUMONIA [None]
  - RENAL FAILURE ACUTE [None]
  - RESPIRATORY FAILURE [None]
